FAERS Safety Report 16297475 (Version 1)
Quarter: 2019Q2

REPORT INFORMATION
  Report Type: Spontaneous
  Country: US (occurrence: US)
  Receive Date: 20190509
  Receipt Date: 20190509
  Transmission Date: 20190711
  Serious: Yes (Other)
  Sender: FDA-Public Use
  Company Number: None

PATIENT
  Age: 63 Year
  Sex: Female
  Weight: 66.5 kg

DRUGS (3)
  1. ROSUVASTATIN. [Concomitant]
     Active Substance: ROSUVASTATIN
     Dates: start: 20190425
  2. LORBRENA [Suspect]
     Active Substance: LORLATINIB
     Indication: NON-SMALL CELL LUNG CANCER
     Route: 048
     Dates: start: 20190327, end: 20190506
  3. SULINDAC. [Concomitant]
     Active Substance: SULINDAC
     Dates: start: 20181009

REACTIONS (3)
  - Hallucination, auditory [None]
  - Depression [None]
  - Aggression [None]

NARRATIVE: CASE EVENT DATE: 20190327
